FAERS Safety Report 6700134-2 (Version None)
Quarter: 2010Q2

REPORT INFORMATION
  Report Type: 
  Country: None (occurrence: None)
  Receive Date: 20100428
  Receipt Date: 20100421
  Transmission Date: 20101027
  Serious: Yes (Hospitalization)
  Sender: FDA-Public Use
  Company Number: US-ASTRAZENECA-2010SE17694

PATIENT
  Age: 35 Year
  Sex: Female

DRUGS (5)
  1. SEROQUEL [Suspect]
     Indication: SCHIZOPHRENIA
     Route: 048
     Dates: start: 20080101, end: 20100407
  2. SEROQUEL [Suspect]
     Route: 048
     Dates: start: 20100326, end: 20100328
  3. DIZALPRODEX SODER [Concomitant]
     Route: 048
  4. SERTRALINE HCL [Concomitant]
     Route: 048
  5. TRAZODONE HCL [Concomitant]
     Route: 048

REACTIONS (3)
  - AGGRESSION [None]
  - CONFUSIONAL STATE [None]
  - SOMNAMBULISM [None]
